FAERS Safety Report 10459789 (Version 1)
Quarter: 2014Q3

REPORT INFORMATION
  Report Type: Spontaneous
  Country: FR (occurrence: FR)
  Receive Date: 20140917
  Receipt Date: 20140917
  Transmission Date: 20150326
  Serious: Yes (Hospitalization)
  Sender: FDA-Public Use
  Company Number: FR-SA-2014SA121678

PATIENT
  Age: 58 Year
  Sex: Male
  Weight: 75 kg

DRUGS (3)
  1. VANCOMYCINE [Suspect]
     Active Substance: VANCOMYCIN
     Indication: STAPHYLOCOCCAL INFECTION
     Dosage: STRENGTH: 125 MG
     Route: 042
     Dates: start: 20140718, end: 20140719
  2. RIFADINE [Suspect]
     Active Substance: RIFAMPIN
     Indication: STAPHYLOCOCCAL INFECTION
     Dosage: STRENGTH: 300 MG DOSE:2 UNIT(S)
     Route: 048
     Dates: start: 20140719, end: 20140720
  3. RIFADINE [Suspect]
     Active Substance: RIFAMPIN
     Indication: STAPHYLOCOCCAL INFECTION
     Route: 042
     Dates: start: 20140718, end: 20140719

REACTIONS (2)
  - Neutropenia [Recovered/Resolved]
  - Leukopenia [Recovered/Resolved]

NARRATIVE: CASE EVENT DATE: 20140816
